FAERS Safety Report 20995428 (Version 2)
Quarter: 2022Q3

REPORT INFORMATION
  Report Type: Spontaneous
  Country: US (occurrence: US)
  Receive Date: 20220622
  Receipt Date: 20220706
  Transmission Date: 20221027
  Serious: Yes (Other)
  Sender: FDA-Public Use
  Company Number: US-PRINSTON PHARMACEUTICAL INC.-2022PRN00219

PATIENT
  Age: 80 Year
  Sex: Male
  Weight: 69.841 kg

DRUGS (2)
  1. FUROSEMIDE [Suspect]
     Active Substance: FUROSEMIDE
     Indication: Fluid retention
     Dosage: 40 MG, 1X/DAY
     Dates: start: 202205, end: 202206
  2. UNSPECIFIED OTHER MEDICATIONS AND SUPPLEMENT [Concomitant]

REACTIONS (5)
  - Pulmonary oedema [Recovering/Resolving]
  - Insomnia [Unknown]
  - Drug ineffective [Not Recovered/Not Resolved]
  - Therapeutic response shortened [Not Recovered/Not Resolved]
  - Product substitution issue [Not Recovered/Not Resolved]

NARRATIVE: CASE EVENT DATE: 20220501
